FAERS Safety Report 17880236 (Version 1)
Quarter: 2020Q2

REPORT INFORMATION
  Report Type: Spontaneous
  Country: US (occurrence: US)
  Receive Date: 20200609
  Receipt Date: 20200609
  Transmission Date: 20200714
  Serious: Yes (Hospitalization)
  Sender: FDA-Public Use
  Company Number: None

PATIENT
  Age: 63 Year
  Sex: Female

DRUGS (18)
  1. PHENYTOIN. [Concomitant]
     Active Substance: PHENYTOIN
  2. SILDENAFIL. [Concomitant]
     Active Substance: SILDENAFIL
  3. LOSARTAN. [Concomitant]
     Active Substance: LOSARTAN
  4. ATORVASTATIN [Concomitant]
     Active Substance: ATORVASTATIN
  5. NORCO [Concomitant]
     Active Substance: ACETAMINOPHEN\HYDROCODONE BITARTRATE
  6. ATROVENT [Concomitant]
     Active Substance: IPRATROPIUM BROMIDE
  7. AMBRISENTAN 10MG TABLETS 30/BO: 10MG [Suspect]
     Active Substance: AMBRISENTAN
     Indication: PULMONARY ARTERIAL HYPERTENSION
     Route: 048
     Dates: start: 201407
  8. CARVEDILOL. [Concomitant]
     Active Substance: CARVEDILOL
  9. LEVOTHYROXINE. [Concomitant]
     Active Substance: LEVOTHYROXINE
  10. FUROSEMIDE. [Concomitant]
     Active Substance: FUROSEMIDE
  11. LACTULOSE. [Concomitant]
     Active Substance: LACTULOSE
  12. URSODIOL. [Concomitant]
     Active Substance: URSODIOL
  13. FERROUS SULFATE. [Concomitant]
     Active Substance: FERROUS SULFATE
  14. ONDANSETRON [Concomitant]
     Active Substance: ONDANSETRON
  15. NARCAN [Concomitant]
     Active Substance: NALOXONE HYDROCHLORIDE
  16. RIFAXIMIN. [Concomitant]
     Active Substance: RIFAXIMIN
  17. OMEPRAZOLE. [Concomitant]
     Active Substance: OMEPRAZOLE
  18. CALCIUN CARBONATE W/ VIT D [Concomitant]

REACTIONS (2)
  - Seizure [None]
  - Cardiac failure [None]

NARRATIVE: CASE EVENT DATE: 20200506
